FAERS Safety Report 23598259 (Version 2)
Quarter: 2024Q1

REPORT INFORMATION
  Report Type: Spontaneous
  Country: DE (occurrence: DE)
  Receive Date: 20240305
  Receipt Date: 20240319
  Transmission Date: 20240410
  Serious: Yes (Other)
  Sender: FDA-Public Use
  Company Number: DE-BASILEA PHARMACEUTICA DEUTSCHLAND GMBH-DE-BAS-24-00202

PATIENT
  Age: 61 Year
  Sex: Male

DRUGS (3)
  1. CASPOFUNGIN ACETATE [Suspect]
     Active Substance: CASPOFUNGIN ACETATE
     Indication: Aspergillus infection
     Dosage: UNK, UNK, UNKNOWN FREQ.
     Route: 065
     Dates: start: 20240118
  2. CRESEMBA [Suspect]
     Active Substance: ISAVUCONAZONIUM SULFATE
     Indication: Aspergillus infection
     Dosage: UNK
     Route: 065
     Dates: start: 20231231
  3. AMBISOME [Suspect]
     Active Substance: AMPHOTERICIN B
     Indication: Aspergillus infection
     Dosage: UNK, UNKNOWN FREQ. (RESPIRATORY INHALATION)
     Dates: start: 20240118

REACTIONS (4)
  - Disease progression [Unknown]
  - Renal failure [Unknown]
  - Aspergillus infection [Unknown]
  - Antimicrobial susceptibility test resistant [Unknown]
